FAERS Safety Report 11298792 (Version 3)
Quarter: 2015Q4

REPORT INFORMATION
  Report Type: Spontaneous
  Country: US (occurrence: US)
  Receive Date: 20150722
  Receipt Date: 20151110
  Transmission Date: 20160304
  Serious: No
  Sender: FDA-Public Use
  Company Number: US-ELI_LILLY_AND_COMPANY-US201108005788

PATIENT
  Age: 68 Year
  Sex: Female

DRUGS (7)
  1. FORTEO [Suspect]
     Active Substance: TERIPARATIDE
     Dosage: 20 UG, QD
  2. FORTEO [Suspect]
     Active Substance: TERIPARATIDE
     Indication: OSTEOPOROSIS
     Dosage: 20 UG, QD
  3. EVISTA [Suspect]
     Active Substance: RALOXIFENE HYDROCHLORIDE
     Indication: OSTEOPOROSIS
     Dosage: 60 MG, QD
  4. FORTEO [Suspect]
     Active Substance: TERIPARATIDE
     Dosage: 20 UG, QD
  5. FORTEO [Suspect]
     Active Substance: TERIPARATIDE
     Dosage: 20 UG, QD
  6. FOSAMAX [Concomitant]
     Active Substance: ALENDRONATE SODIUM
  7. BONIVA [Concomitant]
     Active Substance: IBANDRONATE SODIUM

REACTIONS (13)
  - Osteoporosis [Unknown]
  - Ovarian disorder [Unknown]
  - Restless legs syndrome [Unknown]
  - Adnexa uteri pain [Recovered/Resolved]
  - Arthralgia [Unknown]
  - Pain [Unknown]
  - Muscle spasms [Unknown]
  - Drug ineffective [Unknown]
  - Adnexa uteri pain [Not Recovered/Not Resolved]
  - Pain in extremity [Unknown]
  - Malaise [Not Recovered/Not Resolved]
  - Bone pain [Unknown]
  - Discomfort [Not Recovered/Not Resolved]

NARRATIVE: CASE EVENT DATE: 201107
